FAERS Safety Report 20785398 (Version 1)
Quarter: 2022Q2

REPORT INFORMATION
  Report Type: Spontaneous
  Country: CH (occurrence: CH)
  Receive Date: 20220504
  Receipt Date: 20220504
  Transmission Date: 20220721
  Serious: Yes (Other)
  Sender: FDA-Public Use
  Company Number: CH-GILEAD-2022-0579794

PATIENT
  Age: 73 Year
  Sex: Female

DRUGS (1)
  1. TRODELVY [Suspect]
     Active Substance: SACITUZUMAB GOVITECAN-HZIY
     Indication: Neoplasm progression
     Dosage: UNK
     Route: 042
     Dates: start: 20210907

REACTIONS (2)
  - Disease progression [Unknown]
  - Performance status decreased [Unknown]

NARRATIVE: CASE EVENT DATE: 20210908
